FAERS Safety Report 23483032 (Version 1)
Quarter: 2024Q1

REPORT INFORMATION
  Report Type: Spontaneous
  Country: US (occurrence: US)
  Receive Date: 20240205
  Receipt Date: 20240205
  Transmission Date: 20240410
  Serious: No
  Sender: FDA-Public Use
  Company Number: US-PFIZER INC-202400028082

PATIENT
  Age: 61 Year
  Sex: Male

DRUGS (2)
  1. CIBINQO [Suspect]
     Active Substance: ABROCITINIB
     Indication: Dermatitis atopic
     Dosage: 100 MG  2 (TWO) TIMES A DAY
     Route: 048
  2. CIBINQO [Suspect]
     Active Substance: ABROCITINIB
     Dosage: 100MG TABLETS ONCE DAILY

REACTIONS (6)
  - Arthralgia [Unknown]
  - Dry skin [Unknown]
  - Allergy to animal [Unknown]
  - Pyrexia [Unknown]
  - Off label use [Unknown]
  - Product prescribing error [Unknown]
